FAERS Safety Report 22084882 (Version 1)
Quarter: 2023Q1

REPORT INFORMATION
  Report Type: Spontaneous
  Country: US (occurrence: US)
  Receive Date: 20230310
  Receipt Date: 20230310
  Transmission Date: 20230418
  Serious: No
  Sender: FDA-Public Use
  Company Number: US-PFIZER INC-202300096808

PATIENT
  Age: 58 Year
  Sex: Male
  Weight: 99.79 kg

DRUGS (1)
  1. PAXLOVID [Suspect]
     Active Substance: NIRMATRELVIR\RITONAVIR
     Indication: COVID-19 treatment
     Dosage: 400 MG, (IT^S 400 MG IN THE MORNING THEN AT NIGHT, YES, IT^S THE SAME AT NIGHT)
     Dates: start: 202303

REACTIONS (1)
  - Nausea [Unknown]

NARRATIVE: CASE EVENT DATE: 20230301
